FAERS Safety Report 21487788 (Version 1)
Quarter: 2022Q4

REPORT INFORMATION
  Report Type: Spontaneous
  Country: SA (occurrence: SA)
  Receive Date: 20221020
  Receipt Date: 20221020
  Transmission Date: 20230113
  Serious: Yes (Hospitalization)
  Sender: FDA-Public Use
  Company Number: SA-SERVIER-S22010609

PATIENT
  Age: 58 Year
  Sex: Female

DRUGS (2)
  1. LONSURF [Suspect]
     Active Substance: TIPIRACIL HYDROCHLORIDE\TRIFLURIDINE
     Indication: Product used for unknown indication
     Dosage: UNK, ON DAYS 1-5 AND 8-12 OF EACH 28-DAY CYCLE
     Route: 048
  2. BEVACIZUMAB [Suspect]
     Active Substance: BEVACIZUMAB
     Indication: Product used for unknown indication

REACTIONS (3)
  - Gastrointestinal perforation [Unknown]
  - Gastrointestinal haemorrhage [Unknown]
  - Product use issue [Recovered/Resolved]
